FAERS Safety Report 4408013-0 (Version None)
Quarter: 2004Q3

REPORT INFORMATION
  Report Type: 
  Country: None (occurrence: None)
  Receive Date: 20040721
  Receipt Date: 20040701
  Transmission Date: 20050211
  Serious: Yes (Death, Other)
  Sender: FDA-Public Use
  Company Number: FR_040704396

PATIENT
  Age: 53 Year
  Sex: Male

DRUGS (5)
  1. XIGRIS [Suspect]
     Indication: SEPTIC SHOCK
     Dosage: 1.44 MG HOUR
     Dates: start: 20040608, end: 20040611
  2. AMOXICILLIN W/CLAVULANIC ACID [Concomitant]
  3. GENTAMICIN [Concomitant]
  4. HEPARIN [Concomitant]
  5. SEDATIVE THERAPY [Concomitant]

REACTIONS (7)
  - BRAIN DEATH [None]
  - BRAIN HERNIATION [None]
  - CEREBRAL HAEMATOMA [None]
  - CONDITION AGGRAVATED [None]
  - DEPRESSED LEVEL OF CONSCIOUSNESS [None]
  - SUBARACHNOID HAEMORRHAGE [None]
  - THROMBOCYTOPENIA [None]
